FAERS Safety Report 18871413 (Version 1)
Quarter: 2021Q1

REPORT INFORMATION
  Report Type: Spontaneous
  Country: JP (occurrence: JP)
  Receive Date: 20210210
  Receipt Date: 20210210
  Transmission Date: 20210420
  Serious: Yes (Hospitalization)
  Sender: FDA-Public Use
  Company Number: NVSJ2021JP001068

PATIENT
  Age: 76 Year
  Sex: Male

DRUGS (2)
  1. EQUMET [Suspect]
     Active Substance: METFORMIN HYDROCHLORIDE\VILDAGLIPTIN
     Indication: TYPE 2 DIABETES MELLITUS
     Dosage: 1DF: VILDAGLIPTIN 50MG, METFORMIN HYDROCHLORIDE UNK, UNK
     Route: 048
  2. EQUMET [Suspect]
     Active Substance: METFORMIN HYDROCHLORIDE\VILDAGLIPTIN
     Dosage: 1DF: VILDAGLIPTIN 50MG, METFORMIN HYDROCHLORIDE UNK, UNK
     Route: 050
     Dates: start: 20200115

REACTIONS (2)
  - Cerebral haemorrhage [Unknown]
  - Dysphagia [Unknown]

NARRATIVE: CASE EVENT DATE: 20210115
